FAERS Safety Report 11043233 (Version 4)
Quarter: 2015Q2

REPORT INFORMATION
  Report Type: Report from Study
  Country: DE (occurrence: DE)
  Receive Date: 20150417
  Receipt Date: 20150522
  Transmission Date: 20150821
  Serious: Yes (Hospitalization, Other)
  Sender: FDA-Public Use
  Company Number: DE-SA-2015SA047239

PATIENT
  Age: 23 Year
  Sex: Male
  Weight: 95 kg

DRUGS (3)
  1. IBU [Suspect]
     Active Substance: IBUPROFEN
     Dosage: DOSE: 800 TO 2400 MG/DAY
     Route: 048
     Dates: start: 20150501
  2. AUBAGIO [Suspect]
     Active Substance: TERIFLUNOMIDE
     Indication: RELAPSING-REMITTING MULTIPLE SCLEROSIS
     Route: 048
     Dates: start: 20150110
  3. AUBAGIO [Suspect]
     Active Substance: TERIFLUNOMIDE
     Indication: RELAPSING-REMITTING MULTIPLE SCLEROSIS
     Dosage: PAUSED EVERY 3RD DAY
     Route: 048
     Dates: start: 201311, end: 20140824

REACTIONS (14)
  - Multiple sclerosis relapse [Recovered/Resolved]
  - Dysaesthesia [Recovered/Resolved]
  - C-reactive protein increased [Recovered/Resolved]
  - Melaena [Unknown]
  - Chills [Recovered/Resolved]
  - Abdominal pain lower [Unknown]
  - Vomiting [Unknown]
  - Gastric ulcer [Recovering/Resolving]
  - Abdominal abscess [Unknown]
  - Pyrexia [Recovered/Resolved]
  - Peritonitis [Recovered/Resolved]
  - Appendicitis [Recovered/Resolved]
  - Diarrhoea [Recovered/Resolved]
  - Leukocytosis [Recovered/Resolved]

NARRATIVE: CASE EVENT DATE: 2014
